FAERS Safety Report 14020202 (Version 5)
Quarter: 2020Q3

REPORT INFORMATION
  Report Type: Spontaneous
  Country: US (occurrence: US)
  Receive Date: 20170928
  Receipt Date: 20200929
  Transmission Date: 20201102
  Serious: Yes (Other)
  Sender: FDA-Public Use
  Company Number: US-PFIZER INC-2017418113

PATIENT
  Age: 76 Year
  Sex: Female
  Weight: 70.31 kg

DRUGS (1)
  1. LYRICA [Suspect]
     Active Substance: PREGABALIN
     Dosage: 75 MG, 3X/DAY
     Route: 048

REACTIONS (1)
  - Fractured coccyx [Not Recovered/Not Resolved]

NARRATIVE: CASE EVENT DATE: 2016
